FAERS Safety Report 6214086-5 (Version None)
Quarter: 2009Q2

REPORT INFORMATION
  Report Type: 
  Country: None (occurrence: None)
  Receive Date: 20090604
  Receipt Date: 20090529
  Transmission Date: 20091009
  Serious: Yes (Other)
  Sender: FDA-Public Use
  Company Number: BR-ROCHE-593068

PATIENT
  Sex: Male
  Weight: 67.5 kg

DRUGS (6)
  1. RIVOTRIL [Suspect]
     Indication: PANIC ATTACK
     Dosage: TAKES 1 MG AT NIGHT AND SOMETIMES 1 MG IN MORNING
     Route: 048
     Dates: start: 20080101, end: 20080901
  2. RIVOTRIL [Suspect]
     Route: 048
     Dates: start: 20090528
  3. CAPTOPRIL [Concomitant]
     Indication: HYPERTENSION
     Route: 048
  4. AAS [Concomitant]
     Indication: PLASMA VISCOSITY DECREASED
     Dosage: DRUG: AAS INFANT FORMULA, DOSE: 1 X DAY
     Route: 048
  5. LORATADINE [Concomitant]
     Dosage: FREQUENCU: ONCE DAILY
     Route: 048
  6. GINKGO BILOBA [Concomitant]
     Route: 048

REACTIONS (15)
  - ABDOMINAL PAIN [None]
  - CONFUSIONAL STATE [None]
  - DEPRESSION [None]
  - DRUG INEFFECTIVE [None]
  - DRY MOUTH [None]
  - DYSURIA [None]
  - FATIGUE [None]
  - FEELING DRUNK [None]
  - INSOMNIA [None]
  - MUSCULAR WEAKNESS [None]
  - MYALGIA [None]
  - PANIC DISORDER [None]
  - PROSTATOMEGALY [None]
  - SOMNOLENCE [None]
  - TREMOR [None]
